FAERS Safety Report 14803485 (Version 3)
Quarter: 2018Q2

REPORT INFORMATION
  Report Type: Report from Study
  Country: CA (occurrence: CA)
  Receive Date: 20180425
  Receipt Date: 20180504
  Transmission Date: 20180711
  Serious: Yes (Other)
  Sender: FDA-Public Use
  Company Number: CA-ROCHE-2070850

PATIENT
  Sex: Female
  Weight: 70 kg

DRUGS (6)
  1. ESCITALOPRAM [Suspect]
     Active Substance: ESCITALOPRAM OXALATE
     Indication: ANXIETY
     Route: 065
  2. GABAPENTIN. [Concomitant]
     Active Substance: GABAPENTIN
  3. TAMOXIFEN [Suspect]
     Active Substance: TAMOXIFEN
     Indication: PRODUCT USED FOR UNKNOWN INDICATION
     Route: 065
  4. TECENTRIQ [Suspect]
     Active Substance: ATEZOLIZUMAB
     Indication: TRANSITIONAL CELL CARCINOMA
     Dosage: DATE OF MOST RECENT DOSE ON 18/APR/2018
     Route: 042
     Dates: start: 20171004
  5. ATIVAN [Concomitant]
     Active Substance: LORAZEPAM
     Route: 065
  6. MISTLETOE [Concomitant]
     Active Substance: VISCUM ALBUM FRUITING TOP

REACTIONS (7)
  - Decreased appetite [Unknown]
  - Anxiety [Unknown]
  - Diarrhoea [Recovering/Resolving]
  - Weight decreased [Unknown]
  - Frequent bowel movements [Recovering/Resolving]
  - Anxiety disorder [Unknown]
  - Nasopharyngitis [Recovering/Resolving]
